FAERS Safety Report 8904473 (Version 1)
Quarter: 2012Q4

REPORT INFORMATION
  Report Type: Report from Study
  Country: US (occurrence: US)
  Receive Date: 20121110
  Receipt Date: 20121110
  Transmission Date: 20130627
  Serious: No
  Sender: FDA-Public Use
  Company Number: US-009507513-1211USA002576

PATIENT
  Sex: Female
  Weight: 117.1 kg

DRUGS (1)
  1. IMPLANON [Suspect]
     Dosage: UNK
     Dates: start: 20120711, end: 20121105

REACTIONS (3)
  - Acne [Unknown]
  - Mood swings [Unknown]
  - Weight increased [Unknown]
